FAERS Safety Report 15344394 (Version 1)
Quarter: 2018Q4

REPORT INFORMATION
  Report Type: Spontaneous
  Country: IT (occurrence: IT)
  Receive Date: 20180903
  Receipt Date: 20180903
  Transmission Date: 20190204
  Serious: Yes (Hospitalization)
  Sender: FDA-Public Use
  Company Number: IT-PFIZER INC-2001081780IT

PATIENT
  Age: 77 Year
  Sex: Male

DRUGS (4)
  1. ALLOPURINOL. [Concomitant]
     Active Substance: ALLOPURINOL
     Dosage: UNK
     Route: 048
     Dates: start: 1986
  2. DAFLON [DIOSMIN] [Suspect]
     Active Substance: DIOSMIN
     Indication: ANGIOPATHY
     Dosage: 500 MG, 1X/DAY
     Route: 048
     Dates: start: 20011101, end: 20011108
  3. DAFLON [DIOSMIN] [Suspect]
     Active Substance: DIOSMIN
     Indication: VARICOSE VEIN
  4. CELEBREX [Suspect]
     Active Substance: CELECOXIB
     Indication: OSTEOARTHRITIS
     Dosage: 200 MG, 1X/DAY
     Route: 048
     Dates: start: 20011025, end: 20011108

REACTIONS (2)
  - Erythema [Recovered/Resolved]
  - Rash generalised [Recovered/Resolved]

NARRATIVE: CASE EVENT DATE: 20011108
